FAERS Safety Report 7577138-3 (Version None)
Quarter: 2011Q2

REPORT INFORMATION
  Report Type: 
  Country: None (occurrence: None)
  Receive Date: 20110628
  Receipt Date: 20110603
  Transmission Date: 20111010
  Serious: Yes (Hospitalization, Other)
  Sender: FDA-Public Use
  Company Number: US-BAYER-2011-023390

PATIENT
  Age: 17 Year
  Sex: Female
  Weight: 52.608 kg

DRUGS (11)
  1. BACTROBAN [Concomitant]
     Dosage: UNK
     Dates: start: 20070320, end: 20070917
  2. YAZ [Suspect]
  3. TRIAMCINOLONE [Concomitant]
     Dosage: UNK
     Dates: start: 20061107, end: 20070917
  4. ZYRTEC [Concomitant]
     Dosage: UNK
     Dates: start: 20020917, end: 20070917
  5. DICLOFENAC SODIUM [Concomitant]
     Dosage: UNK
     Dates: start: 20061020, end: 20070917
  6. BENZACLIN [Concomitant]
     Dosage: UNK
     Dates: start: 20061220, end: 20090714
  7. PANTANOL [Concomitant]
     Dosage: UNK
     Dates: start: 20070809, end: 20070917
  8. HYOSCYAMINE [Concomitant]
     Dosage: UNK
     Dates: start: 20021011, end: 20080221
  9. TIZANIDINE HCL [Concomitant]
     Dosage: UNK
     Dates: start: 20070716, end: 20071031
  10. URISED [Concomitant]
     Dosage: UNK
     Dates: start: 20070716, end: 20070917
  11. PREDNISONE [Concomitant]
     Dosage: UNK
     Dates: start: 20071012

REACTIONS (3)
  - CHOLECYSTITIS [None]
  - CHOLECYSTECTOMY [None]
  - EMOTIONAL DISTRESS [None]
